FAERS Safety Report 18795056 (Version 1)
Quarter: 2021Q1

REPORT INFORMATION
  Report Type: Spontaneous
  Country: US (occurrence: US)
  Receive Date: 20210127
  Receipt Date: 20210127
  Transmission Date: 20210419
  Serious: No
  Sender: FDA-Public Use
  Company Number: None

PATIENT
  Age: 55 Year
  Sex: Female
  Weight: 105.75 kg

DRUGS (14)
  1. JARDIANCE [Suspect]
     Active Substance: EMPAGLIFLOZIN
     Indication: TYPE 2 DIABETES MELLITUS
     Route: 048
  2. BUPROPION. [Concomitant]
     Active Substance: BUPROPION
  3. GABAPENTIN. [Concomitant]
     Active Substance: GABAPENTIN
  4. LORATADINE. [Concomitant]
     Active Substance: LORATADINE
  5. SERTRALINE [Concomitant]
     Active Substance: SERTRALINE HYDROCHLORIDE
  6. ACETAMINOPHEN. [Concomitant]
     Active Substance: ACETAMINOPHEN
  7. LISINOPRIL. [Concomitant]
     Active Substance: LISINOPRIL
  8. IBUPROFEN. [Concomitant]
     Active Substance: IBUPROFEN
  9. SIMVASTATIN. [Concomitant]
     Active Substance: SIMVASTATIN
  10. GLIPIZIDE. [Concomitant]
     Active Substance: GLIPIZIDE
  11. HYDROCHLOROTHIAZIDE. [Concomitant]
     Active Substance: HYDROCHLOROTHIAZIDE
  12. JANUVIA [Concomitant]
     Active Substance: SITAGLIPTIN PHOSPHATE
  13. FLUTICASONE PROPIONATE NASAL SPRAY [Concomitant]
     Active Substance: FLUTICASONE PROPIONATE
  14. VENTOLIN HFA [Concomitant]
     Active Substance: ALBUTEROL SULFATE

REACTIONS (4)
  - Vulvovaginal discomfort [None]
  - Fungal infection [None]
  - Vulvovaginal burning sensation [None]
  - Vulvovaginal pruritus [None]

NARRATIVE: CASE EVENT DATE: 20201201
